FAERS Safety Report 8046693-1 (Version None)
Quarter: 2012Q1

REPORT INFORMATION
  Report Type: 
  Country: None (occurrence: None)
  Receive Date: 20120116
  Receipt Date: 20120110
  Transmission Date: 20120608
  Serious: Yes (Hospitalization, Other)
  Sender: FDA-Public Use
  Company Number: US-BRISTOL-MYERS SQUIBB COMPANY-15614993

PATIENT
  Age: 64 Year
  Sex: Male
  Weight: 114 kg

DRUGS (1)
  1. IPILIMUMAB [Suspect]
     Indication: MALIGNANT MELANOMA
     Dosage: 10MG/KG OVER 90 MIN ON DAY 1 Q12 WK CYC:21D MAINT THE FROM CYCLE 5 LD:23FEB11,28MAR11
     Route: 042
     Dates: start: 20110223

REACTIONS (9)
  - CONDUCTION DISORDER [None]
  - DECREASED APPETITE [None]
  - HYPOCALCAEMIA [None]
  - HYPOTENSION [None]
  - DIZZINESS [None]
  - ANAEMIA [None]
  - FATIGUE [None]
  - WEIGHT DECREASED [None]
  - CHILLS [None]
